FAERS Safety Report 14873821 (Version 2)
Quarter: 2018Q2

REPORT INFORMATION
  Report Type: Report from Study
  Country: TR (occurrence: TR)
  Receive Date: 20180510
  Receipt Date: 20180525
  Transmission Date: 20180711
  Serious: No
  Sender: FDA-Public Use
  Company Number: TR-JNJFOC-20180504620

PATIENT
  Age: 45 Year
  Sex: Male
  Weight: 74 kg

DRUGS (2)
  1. SIMPONI [Suspect]
     Active Substance: GOLIMUMAB
     Indication: ANKYLOSING SPONDYLITIS
     Route: 058
  2. SIMPONI [Suspect]
     Active Substance: GOLIMUMAB
     Indication: ANKYLOSING SPONDYLITIS
     Route: 058
     Dates: start: 20180402, end: 20180501

REACTIONS (1)
  - Pharyngitis [Recovered/Resolved]

NARRATIVE: CASE EVENT DATE: 20180423
